FAERS Safety Report 5959672-2 (Version None)
Quarter: 2008Q4

REPORT INFORMATION
  Report Type: 
  Country: None (occurrence: None)
  Receive Date: 20081120
  Receipt Date: 20081106
  Transmission Date: 20090506
  Serious: Yes (Death)
  Sender: FDA-Public Use
  Company Number: FR-ELI_LILLY_AND_COMPANY-FR200810004549

PATIENT
  Age: 74 Year
  Sex: Male

DRUGS (5)
  1. FORTEO [Suspect]
     Indication: OSTEOPOROSIS
     Dosage: 20 UG, DAILY (1/D)
     Route: 058
     Dates: start: 20080610
  2. SOLUPRED [Concomitant]
     Indication: CHRONIC LYMPHOCYTIC LEUKAEMIA
     Dosage: 30 MG, DAILY (1/D)
     Route: 048
     Dates: start: 20030101
  3. CHLORAMINOPHENE [Concomitant]
     Indication: CHRONIC LYMPHOCYTIC LEUKAEMIA
     Dosage: UNK, UNKNOWN
     Route: 065
  4. LEVOTHYROX [Concomitant]
     Dosage: 125 UG, UNKNOWN
     Route: 065
  5. ZALDIAR [Concomitant]
     Dosage: 5 D/F, DAILY (1/D)
     Route: 048
     Dates: start: 20080601

REACTIONS (1)
  - CHRONIC LYMPHOCYTIC LEUKAEMIA [None]
